FAERS Safety Report 4961784-7 (Version None)
Quarter: 2006Q1

REPORT INFORMATION
  Report Type: 
  Country: None (occurrence: None)
  Receive Date: 20060329
  Receipt Date: 20060317
  Transmission Date: 20060701
  Serious: Yes (Hospitalization)
  Sender: FDA-Public Use
  Company Number: MEDI-0004251

PATIENT
  Age: 3 Month
  Sex: Male
  Weight: 4.4 kg

DRUGS (4)
  1. SYNAGIS [Suspect]
     Indication: ANTIVIRAL PROPHYLAXIS
     Dosage: 1 IN 30 D, INTRAMUSCULAR
     Route: 030
     Dates: start: 20060208, end: 20060208
  2. SOTALOL HCL [Concomitant]
  3. MULTIVITAMIN WITH IRON [Concomitant]
  4. DIGOXIN [Concomitant]

REACTIONS (6)
  - BACTERIAL INFECTION [None]
  - BLOOD CULTURE POSITIVE [None]
  - BRONCHIOLITIS [None]
  - HAEMATOCHEZIA [None]
  - PALLOR [None]
  - VOMITING [None]
